FAERS Safety Report 19301093 (Version 1)
Quarter: 2021Q2

REPORT INFORMATION
  Report Type: Spontaneous
  Country: US (occurrence: US)
  Receive Date: 20210525
  Receipt Date: 20210525
  Transmission Date: 20210717
  Serious: Yes (Disabling)
  Sender: FDA-Public Use
  Company Number: None

PATIENT
  Age: 72 Year
  Sex: Male
  Weight: 96.75 kg

DRUGS (4)
  1. TIZANIDINE. [Suspect]
     Active Substance: TIZANIDINE
     Indication: BACK PAIN
     Route: 048
     Dates: start: 20210511, end: 20210514
  2. APIXIBAN 5 MG [Concomitant]
     Active Substance: APIXABAN
  3. RYTARRY [Concomitant]
     Dates: start: 20180517
  4. PRIMPAXOLE [Concomitant]

REACTIONS (4)
  - Muscle strength abnormal [None]
  - Dysstasia [None]
  - Fall [None]
  - Gait inability [None]

NARRATIVE: CASE EVENT DATE: 20210514
